FAERS Safety Report 9084100 (Version 1)
Quarter: 2013Q1

REPORT INFORMATION
  Report Type: Spontaneous
  Country: US (occurrence: US)
  Receive Date: 20130131
  Receipt Date: 20130131
  Transmission Date: 20140127
  Serious: No
  Sender: FDA-Public Use
  Company Number: US-PFIZER INC-2013037086

PATIENT
  Age: 6 Year
  Sex: Male
  Weight: 24.94 kg

DRUGS (1)
  1. CHILDRENS ADVIL [Suspect]
     Indication: PAIN
     Dosage: UNK
     Route: 048
     Dates: end: 20130127

REACTIONS (2)
  - Swelling face [Recovering/Resolving]
  - Lip swelling [Recovering/Resolving]
